FAERS Safety Report 19686858 (Version 1)
Quarter: 2021Q3

REPORT INFORMATION
  Report Type: Spontaneous
  Country: ES (occurrence: ES)
  Receive Date: 20210811
  Receipt Date: 20210811
  Transmission Date: 20211014
  Serious: Yes (Other)
  Sender: FDA-Public Use
  Company Number: ES-MYLANLABS-2021M1049339

PATIENT
  Age: 13 Year
  Sex: Female

DRUGS (11)
  1. DEXKETOPROFEN TROMETAMOL [Suspect]
     Active Substance: DEXKETOPROFEN TROMETAMOL
     Indication: PAIN MANAGEMENT
     Dosage: UNK
     Route: 065
  2. METAMIZOLE [Suspect]
     Active Substance: METAMIZOLE
     Indication: PAIN MANAGEMENT
     Dosage: UNK
     Route: 065
  3. FENTANYL. [Suspect]
     Active Substance: FENTANYL
     Indication: PAIN MANAGEMENT
     Dosage: UNK
     Route: 065
  4. PARACETAMOL [Suspect]
     Active Substance: ACETAMINOPHEN
     Indication: PAIN MANAGEMENT
     Dosage: UNK
     Route: 065
  5. GABAPENTIN. [Suspect]
     Active Substance: GABAPENTIN
     Indication: PAIN MANAGEMENT
     Dosage: UNK
     Route: 065
  6. IBUPROFEN. [Suspect]
     Active Substance: IBUPROFEN
     Indication: PAIN MANAGEMENT
     Dosage: UNK
     Route: 065
  7. MIDAZOLAM. [Suspect]
     Active Substance: MIDAZOLAM
     Indication: PAIN MANAGEMENT
     Dosage: UNK
     Route: 065
  8. MORPHINE SULFATE. [Suspect]
     Active Substance: MORPHINE SULFATE
     Indication: PAIN MANAGEMENT
     Dosage: UNK
     Route: 065
  9. PROPOFOL. [Suspect]
     Active Substance: PROPOFOL
     Indication: PAIN MANAGEMENT
     Dosage: UNK
     Route: 008
  10. ROPIVACAINE. [Suspect]
     Active Substance: ROPIVACAINE HYDROCHLORIDE
     Indication: PAIN MANAGEMENT
     Dosage: UNK
     Route: 008
  11. FENTANYL. [Suspect]
     Active Substance: FENTANYL
     Dosage: UNK
     Route: 008

REACTIONS (8)
  - Weight decreased [Unknown]
  - Nausea [Recovered/Resolved]
  - Muscular weakness [Unknown]
  - Orthostatic hypotension [Recovered/Resolved]
  - Toxicity to various agents [Recovered/Resolved]
  - Vomiting [Recovered/Resolved]
  - Condition aggravated [Recovered/Resolved]
  - Decreased appetite [Recovered/Resolved]
